FAERS Safety Report 9030838 (Version 1)
Quarter: 2013Q1

REPORT INFORMATION
  Report Type: Spontaneous
  Country: US (occurrence: US)
  Receive Date: 20130123
  Receipt Date: 20130123
  Transmission Date: 20140127
  Serious: Yes (Hospitalization)
  Sender: FDA-Public Use
  Company Number: US-ROCHE-1181531

PATIENT
  Age: 61 Year
  Sex: Male

DRUGS (1)
  1. ACTIVASE [Suspect]
     Indication: ISCHAEMIC STROKE
     Route: 065

REACTIONS (3)
  - Blood fibrinogen decreased [Recovered/Resolved]
  - Haemorrhage [Unknown]
  - Product quality issue [Unknown]
